FAERS Safety Report 15411613 (Version 1)
Quarter: 2018Q3

REPORT INFORMATION
  Report Type: Report from Study
  Country: CN (occurrence: CN)
  Receive Date: 20180921
  Receipt Date: 20180921
  Transmission Date: 20181010
  Serious: Yes (Other)
  Sender: FDA-Public Use
  Company Number: CN-ROCHE-2184193

PATIENT

DRUGS (6)
  1. OXALIPLATIN. [Suspect]
     Active Substance: OXALIPLATIN
     Indication: RECTAL CANCER
     Dosage: AT WEEKS 1, 2, 4 AND 5
     Route: 042
  2. CALCIUM FOLINATE [Suspect]
     Active Substance: LEUCOVORIN CALCIUM
     Indication: RECTAL CANCER
     Dosage: POSTOPERATIVE ADJUVANT CHEMOTHERAPY ON DAY 1 CHEMOTHERAPY REPEATED EVERY 14 DAYS AND TWICE AS ONE CY
     Route: 042
  3. CAPECITABINE. [Suspect]
     Active Substance: CAPECITABINE
     Indication: RECTAL CANCER
     Dosage: CAPE?OX?CRT GROUP: STARTING FROM THE 1ST DAY OF RADIOTHERAPY, CONTINUOUS TAKING 14 DAYS AFTER STOPPI
     Route: 048
  4. OXALIPLATIN. [Suspect]
     Active Substance: OXALIPLATIN
     Dosage: ON DAY 1 CHEMOTHERAPY REPEATED EVERY 14 DAYS AND TWICE AS ONE CYCLE
     Route: 042
  5. 5?FU [Suspect]
     Active Substance: FLUOROURACIL
     Indication: RECTAL CANCER
     Dosage: POSTOPERATIVE ADJUVANT CHEMOTHERAPY ON DAY 1 CHEMOTHERAPY REPEATED EVERY 14 DAYS AND TWICE AS ONE CY
     Route: 042
  6. 5?FU [Suspect]
     Active Substance: FLUOROURACIL
     Dosage: DAYS 1 AND 2 CHEMOTHERAPY REPEATED EVERY 14 DAYS AND TWICE AS ONE CYCLE
     Route: 042

REACTIONS (10)
  - Nausea [Unknown]
  - Hepatic function abnormal [Unknown]
  - Radiation skin injury [Unknown]
  - Vomiting [Unknown]
  - Neurotoxicity [Unknown]
  - Gastroenteritis radiation [Unknown]
  - Bone marrow failure [Unknown]
  - Palmar-plantar erythrodysaesthesia syndrome [Unknown]
  - Diarrhoea [Unknown]
  - Fatigue [Unknown]
